FAERS Safety Report 8553518-4 (Version None)
Quarter: 2012Q3

REPORT INFORMATION
  Report Type: 
  Country: None (occurrence: None)
  Receive Date: 20120731
  Receipt Date: 20120724
  Transmission Date: 20120928
  Serious: Yes (Other)
  Sender: FDA-Public Use
  Company Number: JP-BAYER-2012-075709

PATIENT
  Age: 47 Year
  Sex: Male
  Weight: 80.2 kg

DRUGS (3)
  1. ADALAT [Suspect]
     Indication: HYPERTENSION
     Dosage: 40 MG, QD
     Route: 048
     Dates: start: 19920101, end: 19930901
  2. METFORMIN HYDROCHLORIDE [Concomitant]
     Dosage: 750 MG, QD
     Route: 048
     Dates: start: 19920101, end: 19930901
  3. METFORMIN HYDROCHLORIDE [Concomitant]
     Indication: TYPE 2 DIABETES MELLITUS
     Dosage: 500 MG, QD
     Route: 048
     Dates: start: 19920101, end: 19930901

REACTIONS (2)
  - PERIODONTITIS [None]
  - GINGIVAL HYPERPLASIA [None]
